FAERS Safety Report 5629647-1 (Version None)
Quarter: 2008Q1

REPORT INFORMATION
  Report Type: 
  Country: None (occurrence: None)
  Receive Date: 20080218
  Receipt Date: 20080213
  Transmission Date: 20080703
  Serious: Yes (Other)
  Sender: FDA-Public Use
  Company Number: A0709387A

PATIENT
  Age: 41 Year
  Sex: Female

DRUGS (6)
  1. LAMICTAL [Suspect]
     Dosage: 50MG PER DAY
     Route: 048
     Dates: start: 20080101, end: 20080205
  2. TOPAMAX [Concomitant]
  3. LIPITOR [Concomitant]
  4. SINGULAIR [Concomitant]
  5. SYNTHROID [Concomitant]
  6. VALTREX [Concomitant]

REACTIONS (3)
  - ASTHMA [None]
  - DYSPNOEA [None]
  - WHEEZING [None]
